FAERS Safety Report 9281771 (Version 3)
Quarter: 2014Q1

REPORT INFORMATION
  Report Type: Spontaneous
  Country: US (occurrence: US)
  Receive Date: 20130510
  Receipt Date: 20140107
  Transmission Date: 20141002
  Serious: Yes (Hospitalization)
  Sender: FDA-Public Use
  Company Number: US-B.I. PHARMACEUTICALS,INC./RIDGEFIELD-2013-BI-13050BP

PATIENT
  Age: 60 Year
  Sex: Male
  Weight: 127.01 kg

DRUGS (20)
  1. PRADAXA [Suspect]
     Dosage: 300 MG
     Dates: start: 20110331, end: 20120402
  2. ASPIRIN [Concomitant]
     Dosage: 81 MG
     Route: 048
  3. BETAPACE AF [Concomitant]
     Dosage: 80 MG
     Route: 048
  4. CALCIUM CITRATE+D WITH MAG [Concomitant]
     Route: 048
  5. CINNAMON [Concomitant]
     Dosage: 400 MG
     Route: 048
  6. DOXAZOSIN [Concomitant]
     Dosage: 4 MG
     Route: 048
  7. EXFORGE [Concomitant]
     Route: 048
  8. FISH OIL [Concomitant]
     Dosage: 400 MG
     Route: 048
  9. HYDROCODONE-ACETAMINOPHEN [Concomitant]
     Route: 048
  10. LEVERMIR FLEXPEN [Concomitant]
  11. LISINOPRIL [Concomitant]
     Dosage: 400 MG
     Route: 048
  12. LORATADINE [Concomitant]
     Dosage: 20 MG
     Route: 048
  13. METFORMIN [Concomitant]
     Dosage: 1000 MG
     Route: 048
  14. MORPHINE [Concomitant]
     Dosage: 60 MG
     Route: 048
  15. SOMA [Concomitant]
     Route: 048
  16. VERAMYST [Concomitant]
     Dosage: 55 MCG
  17. VITAMIN D [Concomitant]
     Route: 048
  18. ZETIA [Concomitant]
     Dosage: 10 MG
     Route: 048
  19. NITROGLYCERIN [Concomitant]
     Indication: CHEST PAIN
  20. NOVOLOG FLEXPEN [Concomitant]

REACTIONS (3)
  - Gastrointestinal haemorrhage [Unknown]
  - Anaemia [Unknown]
  - Depression [Unknown]
